FAERS Safety Report 8591349-X (Version None)
Quarter: 2012Q3

REPORT INFORMATION
  Report Type: 
  Country: None (occurrence: None)
  Receive Date: 20120814
  Receipt Date: 20120802
  Transmission Date: 20120928
  Serious: Yes (Death, Hospitalization)
  Sender: FDA-Public Use
  Company Number: GB-ACCORD-014103

PATIENT
  Age: 79 Year
  Sex: Female
  Weight: 55.45 kg

DRUGS (28)
  1. CLOTRIMAZOLE [Concomitant]
  2. CLARITHROMYCIN [Suspect]
     Dosage: 500MG, BID
     Route: 048
     Dates: start: 20120512, end: 20120521
  3. SPIRONOLACTONE [Suspect]
  4. TRAMADOL HCL [Concomitant]
  5. DALTEPARIN SODIUM [Concomitant]
  6. DICLOFENAC DIETHYLAMINE [Concomitant]
  7. ADCAL-D3 [Concomitant]
  8. CANDESARTAN CILEXETIL [Concomitant]
  9. ACETAMINOPHEN [Concomitant]
  10. BUMETANIDE [Suspect]
  11. FORTISIP [Concomitant]
  12. ADENOSINE [Concomitant]
  13. FOLIC ACID [Concomitant]
  14. BISOPROLOL [Concomitant]
     Dosage: INCREASED TO 5MG ONCE DAILY.
  15. DIORALYTE [Concomitant]
  16. HEPARIN [Concomitant]
     Indication: PULMONARY EMBOLISM
  17. AMIODARONE HCL [Concomitant]
     Dosage: STOPPED AS RISK OF LUNG FIBROSIS.
  18. FUROSEMIDE [Concomitant]
  19. METOCLOPRAMIDE [Concomitant]
  20. ACETAMINOPHEN AND CODEINE PHOSPHATE [Concomitant]
  21. WARFARIN SODIUM [Concomitant]
     Indication: PULMONARY EMBOLISM
  22. METHOTREXATE [Suspect]
     Dosage: STOPPED ON ADMISSION. PULMONARY FIBROSIS SECONDARY TO METHOTREXATE AND FLUID OVERLOAD.
  23. ACETAMINOPHEN W/ CODEINE [Concomitant]
  24. OMEPRAZOLE [Concomitant]
  25. GENTAMICIN [Concomitant]
  26. ZOCOR [Suspect]
     Route: 048
  27. AMOXICILLIN AND CLAVULANATE POTASSIUM [Concomitant]
  28. TEICOPLANIN [Concomitant]

REACTIONS (6)
  - PULMONARY FIBROSIS [None]
  - TOXIC EPIDERMAL NECROLYSIS [None]
  - ATRIAL FIBRILLATION [None]
  - RENAL FAILURE ACUTE [None]
  - FLUID OVERLOAD [None]
  - HAEMOGLOBIN DECREASED [None]
